FAERS Safety Report 4665175-8 (Version None)
Quarter: 2005Q2

REPORT INFORMATION
  Report Type: 
  Country: None (occurrence: None)
  Receive Date: 20050517
  Receipt Date: 20050208
  Transmission Date: 20051028
  Serious: No
  Sender: FDA-Public Use
  Company Number: S05-USA-00638-01

PATIENT
  Age: 62 Year
  Sex: Male

DRUGS (4)
  1. NAMENDA [Suspect]
     Indication: COGNITIVE DISORDER
     Dosage: 5 MG QD PO
     Route: 048
     Dates: start: 20050204
  2. ALLOPURINOL [Concomitant]
  3. ARICEPT [Concomitant]
  4. SYNTHROID [Concomitant]

REACTIONS (2)
  - INSOMNIA [None]
  - URTICARIA [None]
